FAERS Safety Report 11179406 (Version 1)
Quarter: 2015Q2

REPORT INFORMATION
  Report Type: Report from Study
  Country: CN (occurrence: CN)
  Receive Date: 20150611
  Receipt Date: 20150611
  Transmission Date: 20150821
  Serious: Yes (Other)
  Sender: FDA-Public Use
  Company Number: CN-009507513-1506CHN002833

PATIENT

DRUGS (1)
  1. TEMOZOLOMIDE. [Suspect]
     Active Substance: TEMOZOLOMIDE
     Indication: SMALL CELL LUNG CANCER
     Dosage: 150 MG/M2/D, FOR 5 DAYS OF A 28-DAY CYCLE
     Route: 048

REACTIONS (1)
  - Toxicity to various agents [Unknown]
